FAERS Safety Report 6770230-2 (Version None)
Quarter: 2010Q2

REPORT INFORMATION
  Report Type: 
  Country: None (occurrence: None)
  Receive Date: 20100615
  Receipt Date: 20100528
  Transmission Date: 20101027
  Serious: No
  Sender: FDA-Public Use
  Company Number: US-JNJFOC-20100510999

PATIENT
  Sex: Male
  Weight: 11.34 kg

DRUGS (2)
  1. CONCENTRATED TYLENOL INFANT DROPS [Suspect]
     Indication: NASOPHARYNGITIS
     Route: 048
  2. CONCENTRATED TYLENOL INFANT DROPS [Suspect]
     Indication: PYREXIA
     Route: 048

REACTIONS (4)
  - BODY TEMPERATURE DECREASED [None]
  - EAR INFECTION [None]
  - PRODUCT QUALITY ISSUE [None]
  - PYREXIA [None]
